FAERS Safety Report 21977828 (Version 2)
Quarter: 2023Q1

REPORT INFORMATION
  Report Type: Spontaneous
  Country: DE (occurrence: DE)
  Receive Date: 20230210
  Receipt Date: 20230308
  Transmission Date: 20230418
  Serious: Yes (Other)
  Sender: FDA-Public Use
  Company Number: DE-BAXTER-2023BAX012632

PATIENT
  Age: 60 Year
  Sex: Female

DRUGS (12)
  1. DOXORUBICIN [Suspect]
     Active Substance: DOXORUBICIN
     Indication: Follicular lymphoma
     Dosage: UNK, UNKNOWN FREQ.
     Route: 065
     Dates: start: 20130701, end: 20140201
  2. CYCLOPHOSPHAMIDE [Suspect]
     Active Substance: CYCLOPHOSPHAMIDE
     Indication: Follicular lymphoma
     Dosage: UNK, UNKNOWN FREQ.
     Route: 065
     Dates: start: 20130701, end: 20140201
  3. BENDAMUSTINE [Suspect]
     Active Substance: BENDAMUSTINE
     Indication: Follicular lymphoma
     Dosage: UNK, CYCLIC, DOSAGE FORM: POWDER (EXCEPT DUSTING POWDER)
     Route: 042
     Dates: start: 20150901, end: 20160201
  4. MABTHERA [Suspect]
     Active Substance: RITUXIMAB
     Indication: Follicular lymphoma
     Dosage: UNK, UNKNOWN FREQ. (FIRST LINE WITH CHOP)
     Route: 065
     Dates: start: 20130701, end: 20140201
  5. MABTHERA [Suspect]
     Active Substance: RITUXIMAB
     Indication: Diffuse large B-cell lymphoma
     Dosage: FIRST LINE WITH CHOP
     Route: 065
     Dates: start: 20181026, end: 20181213
  6. POLATUZUMAB VEDOTIN [Suspect]
     Active Substance: POLATUZUMAB VEDOTIN
     Indication: Follicular lymphoma
     Dosage: UNK, UNKNOWN FREQ.
     Route: 065
     Dates: start: 20200501, end: 20200601
  7. BEAM [Suspect]
     Active Substance: SODIUM FLUORIDE
     Indication: Follicular lymphoma
     Dosage: UNK, UNKNOWN FREQ.
     Route: 065
     Dates: start: 20190201, end: 20190213
  8. VINCRISTINE [Suspect]
     Active Substance: VINCRISTINE
     Indication: Follicular lymphoma
     Dosage: UNK, UNKNOWN FREQ.
     Route: 065
     Dates: start: 20130701, end: 20140201
  9. PREDNISONE [Suspect]
     Active Substance: PREDNISONE
     Indication: Follicular lymphoma
     Dosage: UNK, UNKNOWN FREQ.
     Route: 065
     Dates: start: 20130701, end: 20140201
  10. DEXAMETHASONE [Suspect]
     Active Substance: DEXAMETHASONE
     Indication: Follicular lymphoma
     Dosage: UNK, UNKNOWN FREQ.
     Route: 065
     Dates: start: 20181026, end: 20181213
  11. CISPLATIN\CYTARABINE\DEXAMETHASONE [Suspect]
     Active Substance: CISPLATIN\CYTARABINE\DEXAMETHASONE
     Indication: Follicular lymphoma
     Dosage: UNK, UNKNOWN FREQ.
     Route: 065
     Dates: start: 20181026, end: 20181213
  12. EPIRUBICIN [Suspect]
     Active Substance: EPIRUBICIN
     Indication: Follicular lymphoma
     Dosage: UNK, HYDROCHLORIDE
     Route: 065
     Dates: start: 20130701, end: 20140201

REACTIONS (2)
  - Ototoxicity [Unknown]
  - Malignant neoplasm progression [Unknown]
